FAERS Safety Report 7297442-6 (Version None)
Quarter: 2011Q1

REPORT INFORMATION
  Report Type: 
  Country: None (occurrence: None)
  Receive Date: 20110216
  Receipt Date: 20110214
  Transmission Date: 20110831
  Serious: Yes (Disabling)
  Sender: FDA-Public Use
  Company Number: GB-PFIZER INC-2011023822

PATIENT
  Age: 77 Year
  Sex: Female
  Weight: 85 kg

DRUGS (12)
  1. CHAMPIX [Suspect]
     Dosage: UNK
     Dates: start: 20110110
  2. FUROSEMIDE [Concomitant]
     Dosage: UNK
     Dates: start: 20101018, end: 20110101
  3. NEFOPAM [Concomitant]
     Dosage: UNK
     Dates: start: 20101018, end: 20110101
  4. SALBUTAMOL [Concomitant]
     Dosage: UNK
     Dates: start: 20101011, end: 20110105
  5. TIOTROPIUM BROMIDE [Concomitant]
     Dosage: UNK
     Dates: start: 20100927
  6. PARACETAMOL [Concomitant]
     Dosage: UNK
     Dates: start: 20101018, end: 20110101
  7. AMITRIPTYLINE HYDROCHLORIDE [Concomitant]
     Dosage: UNK
     Dates: start: 20101018, end: 20110124
  8. SERETIDE [Concomitant]
     Dosage: UNK
     Dates: start: 20101007, end: 20101222
  9. NICOTINE [Concomitant]
     Dosage: UNK
     Dates: start: 20101029, end: 20101109
  10. SIMVASTATIN [Concomitant]
     Dosage: UNK
     Dates: start: 20101018, end: 20110101
  11. SPIRIVA [Concomitant]
     Dosage: UNK
     Dates: start: 20110105
  12. FLUPENTIXOL [Concomitant]
     Dosage: UNK
     Dates: start: 20101018, end: 20110101

REACTIONS (2)
  - CONFUSIONAL STATE [None]
  - SOMNOLENCE [None]
